FAERS Safety Report 20895139 (Version 1)
Quarter: 2022Q2

REPORT INFORMATION
  Report Type: Report from Study
  Country: BR (occurrence: BR)
  Receive Date: 20220531
  Receipt Date: 20220531
  Transmission Date: 20220721
  Serious: Yes (Hospitalization)
  Sender: FDA-Public Use
  Company Number: BR-JNJFOC-20220546530

PATIENT
  Age: 28 Year
  Sex: Female

DRUGS (1)
  1. SPRAVATO [Suspect]
     Active Substance: ESKETAMINE
     Indication: Major depression
     Dosage: 3 DEVICES
     Dates: start: 20220509

REACTIONS (1)
  - Depression [Unknown]

NARRATIVE: CASE EVENT DATE: 20220101
